FAERS Safety Report 5209130-8 (Version None)
Quarter: 2007Q1

REPORT INFORMATION
  Report Type: 
  Country: None (occurrence: None)
  Receive Date: 20070111
  Receipt Date: 20061228
  Transmission Date: 20070707
  Serious: Yes (Disabling, Other)
  Sender: FDA-Public Use
  Company Number: POMP-10914

PATIENT
  Age: 22 Month
  Sex: Female
  Weight: 9.1 kg

DRUGS (2)
  1. MYOZYME [Suspect]
     Indication: GLYCOGEN STORAGE DISEASE TYPE II
     Dosage: 20 MG/KG Q2WKS IV
     Route: 042
     Dates: start: 20061026
  2. ALPHA-GLUCOSIDASE (HUMAN, RECOMBINANT, CHO CELLS, GENZYME) [Suspect]
     Indication: GLYCOGEN STORAGE DISEASE TYPE II
     Dosage: 20 MG/KG QWKS IV
     Route: 042
     Dates: start: 20051013, end: 20061026

REACTIONS (27)
  - ANTICONVULSANT DRUG LEVEL INCREASED [None]
  - AREFLEXIA [None]
  - ATELECTASIS [None]
  - BLOOD CALCIUM INCREASED [None]
  - BLOOD GLUCOSE INCREASED [None]
  - BLOOD LACTIC ACID INCREASED [None]
  - BLOOD POTASSIUM DECREASED [None]
  - CARDIAC FAILURE [None]
  - CARDIO-RESPIRATORY ARREST [None]
  - CLONIC CONVULSION [None]
  - COMA [None]
  - CONVULSION [None]
  - EAR INFECTION [None]
  - GASTROINTESTINAL HYPOMOTILITY [None]
  - GASTROINTESTINAL INFECTION [None]
  - HAEMATOCRIT DECREASED [None]
  - HAEMOGLOBIN DECREASED [None]
  - HEPATOMEGALY [None]
  - HYPOTONIA [None]
  - HYPOXIA [None]
  - INFECTION [None]
  - MOTOR DYSFUNCTION [None]
  - NYSTAGMUS [None]
  - RESPIRATORY FAILURE [None]
  - RESPIRATORY TRACT INFECTION [None]
  - TONGUE PARALYSIS [None]
  - URINARY TRACT INFECTION [None]
